FAERS Safety Report 12997981 (Version 1)
Quarter: 2016Q4

REPORT INFORMATION
  Report Type: Spontaneous
  Country: US (occurrence: US)
  Receive Date: 20161205
  Receipt Date: 20161205
  Transmission Date: 20170207
  Serious: Yes (Hospitalization)
  Sender: FDA-Public Use
  Company Number: US-TARO PHARMACEUTICALS USA.,INC-2016SUN00501

PATIENT
  Age: 16 Year
  Sex: Female

DRUGS (1)
  1. CARBAMAZEPINE. [Suspect]
     Active Substance: CARBAMAZEPINE
     Indication: INTENTIONAL PRODUCT MISUSE
     Dosage: TOOK 4 TABLETS
     Route: 048

REACTIONS (13)
  - Dizziness [Recovered/Resolved]
  - Diplopia [Recovered/Resolved]
  - Hypotension [Recovered/Resolved]
  - VIth nerve paralysis [Recovered/Resolved]
  - Intentional product misuse [Recovered/Resolved]
  - Grip strength decreased [Recovered/Resolved]
  - Mental status changes [Recovered/Resolved]
  - Ataxia [Recovered/Resolved]
  - Somnolence [Recovered/Resolved]
  - Nystagmus [Recovered/Resolved]
  - Toxicity to various agents [Recovered/Resolved]
  - Vomiting [Recovered/Resolved]
  - Dysarthria [Recovered/Resolved]
